FAERS Safety Report 5081041-0 (Version None)
Quarter: 2006Q3

REPORT INFORMATION
  Report Type: 
  Country: None (occurrence: None)
  Receive Date: 20060810
  Receipt Date: 20060727
  Transmission Date: 20061208
  Serious: Yes (Hospitalization)
  Sender: FDA-Public Use
  Company Number: US200607004885

PATIENT
  Age: 75 Year
  Sex: Female

DRUGS (1)
  1. HUMULIN N [Suspect]
     Dosage: SEE IMAGE

REACTIONS (2)
  - KETOACIDOSIS [None]
  - PHARMACEUTICAL PRODUCT COMPLAINT [None]
